FAERS Safety Report 7967932-9 (Version None)
Quarter: 2011Q4

REPORT INFORMATION
  Report Type: 
  Country: None (occurrence: None)
  Receive Date: 20111208
  Receipt Date: 20111208
  Transmission Date: 20120403
  Serious: Yes (Life-Threatening, Hospitalization, Other)
  Sender: FDA-Public Use
  Company Number: None

PATIENT
  Sex: Female
  Weight: 63 kg

DRUGS (4)
  1. LIPITOR [Concomitant]
  2. LEVOTHYROXINE SODIUM [Concomitant]
  3. LEUPROLIDE ACETATE [Suspect]
     Indication: INVESTIGATION
     Dosage: 3.75 MG ONCE IM
     Route: 030
     Dates: start: 20111123
  4. MECLIZINE [Concomitant]

REACTIONS (6)
  - HYPOKINESIA [None]
  - CORONARY ARTERY STENOSIS [None]
  - EJECTION FRACTION DECREASED [None]
  - CORONARY ARTERY DISEASE [None]
  - IMPAIRED WORK ABILITY [None]
  - HYPERTENSION [None]
